FAERS Safety Report 7682264-4 (Version None)
Quarter: 2011Q3

REPORT INFORMATION
  Report Type: 
  Country: None (occurrence: None)
  Receive Date: 20110815
  Receipt Date: 20110805
  Transmission Date: 20111222
  Serious: Yes (Death)
  Sender: FDA-Public Use
  Company Number: JP-AMGEN-JPNCT2011029003

PATIENT
  Age: 74 Year
  Sex: Female
  Weight: 38 kg

DRUGS (9)
  1. ANTIHISTAMINES [Concomitant]
     Indication: PROPHYLAXIS
     Dosage: UNK
     Route: 065
  2. PANITUMUMAB [Suspect]
     Indication: COLORECTAL CANCER
     Dosage: 6 MG/KG, Q2WK
     Route: 041
     Dates: start: 20100922, end: 20101206
  3. ARICEPT [Concomitant]
     Dosage: UNK
     Route: 048
  4. MAGNESIUM OXIDE [Concomitant]
     Dosage: UNK
     Route: 048
  5. IRINOTECAN HCL [Concomitant]
     Indication: COLORECTAL CANCER
     Dosage: 140 MG, QWK
     Route: 041
     Dates: start: 20100922, end: 20101206
  6. VERAPAMIL HCL [Concomitant]
     Dosage: UNK
     Route: 048
  7. CORTICOSTEROIDS [Concomitant]
     Indication: PROPHYLAXIS
     Dosage: UNK
     Route: 065
  8. LEUCON [Concomitant]
     Dosage: UNK
     Route: 048
  9. MIYA-BM [Concomitant]
     Dosage: UNK
     Route: 048

REACTIONS (1)
  - COLORECTAL CANCER [None]
